FAERS Safety Report 16832881 (Version 1)
Quarter: 2019Q3

REPORT INFORMATION
  Report Type: Spontaneous
  Country: DE (occurrence: DE)
  Receive Date: 20190920
  Receipt Date: 20190920
  Transmission Date: 20191005
  Serious: Yes (Other)
  Sender: FDA-Public Use
  Company Number: DE-AMGEN-DEUSP2019153140

PATIENT
  Age: 78 Year
  Sex: Female

DRUGS (2)
  1. TALIMOGENE LAHERPAREPVEC [Suspect]
     Active Substance: TALIMOGENE LAHERPAREPVEC
     Indication: URETHRAL MELANOMA METASTATIC
     Dosage: UNK
     Route: 026
  2. TALIMOGENE LAHERPAREPVEC [Suspect]
     Active Substance: TALIMOGENE LAHERPAREPVEC
     Indication: METASTASES TO VAGINA

REACTIONS (2)
  - Urethral melanoma metastatic [Unknown]
  - Therapy partial responder [Unknown]
